FAERS Safety Report 19554042 (Version 2)
Quarter: 2021Q3

REPORT INFORMATION
  Report Type: Report from Study
  Country: JP (occurrence: JP)
  Receive Date: 20210715
  Receipt Date: 20210811
  Transmission Date: 20211014
  Serious: Yes (Hospitalization)
  Sender: FDA-Public Use
  Company Number: JP-ASTELLAS-2021JP013735

PATIENT
  Age: 51 Year
  Sex: Male

DRUGS (21)
  1. MIYA?BM [Concomitant]
     Active Substance: CLOSTRIDIUM BUTYRICUM SPORES STRAIN M-55
     Indication: DIARRHOEA
     Route: 048
     Dates: start: 20210706
  2. AZ [Concomitant]
     Indication: PROPHYLAXIS
     Dosage: AS APPROPRIATE, ADEQUATE DOSE
     Route: 061
     Dates: start: 20210522
  3. POLARAMINE [Concomitant]
     Active Substance: DEXCHLORPHENIRAMINE MALEATE
     Indication: HYPERSENSITIVITY
     Route: 042
     Dates: start: 20210531
  4. HYDROCORTONE [Concomitant]
     Active Substance: HYDROCORTISONE
     Indication: FEBRILE NEUTROPENIA
     Route: 042
     Dates: start: 20210519
  5. WHITE PETROLATUM [Concomitant]
     Active Substance: PETROLATUM
     Indication: DRY SKIN
     Dosage: ADEQUATE DOSE, AS NEEDED
     Route: 061
     Dates: start: 20210521
  6. CYTARABINE. [Suspect]
     Active Substance: CYTARABINE
     Indication: ACUTE MYELOID LEUKAEMIA
     Dosage: REMISSION INDUCTION THERAPY: 100 MG/M2, ONCE DAILY, FROM DAY 1 TO DAY 7
     Route: 041
     Dates: start: 20210514, end: 20210521
  7. NEXIUM [Concomitant]
     Active Substance: ESOMEPRAZOLE MAGNESIUM
     Indication: GASTRITIS PROPHYLAXIS
     Route: 048
     Dates: start: 20210513
  8. GRAN [Concomitant]
     Active Substance: FILGRASTIM
     Indication: FEBRILE NEUTROPENIA
     Route: 042
     Dates: start: 20210623
  9. VORICONAZOLE. [Concomitant]
     Active Substance: VORICONAZOLE
     Indication: BACTERAEMIA
     Route: 048
     Dates: start: 20210623
  10. ASPARA POTASSIUM [Concomitant]
     Active Substance: POTASSIUM ASPARTATE
     Indication: PROPHYLAXIS
     Route: 048
     Dates: start: 20210625
  11. CUBICIN [Concomitant]
     Active Substance: DAPTOMYCIN
     Indication: BACTERAEMIA
  12. CYTARABINE. [Suspect]
     Active Substance: CYTARABINE
     Dosage: CONSOLIDATION THERAPY: 1.5 G/M2, TWICE DAILY, DAY 1, 3, 5
     Route: 041
     Dates: start: 20210514, end: 20210521
  13. HYDROCORTONE [Concomitant]
     Active Substance: HYDROCORTISONE
     Indication: HYPERSENSITIVITY
  14. CUBICIN [Concomitant]
     Active Substance: DAPTOMYCIN
     Indication: FEBRILE NEUTROPENIA
     Route: 041
     Dates: start: 20210626
  15. PAZUCROSS [Concomitant]
     Active Substance: PAZUFLOXACIN MESILATE
     Indication: BACTERAEMIA
     Route: 041
     Dates: start: 20210628
  16. IDARUBICIN [Suspect]
     Active Substance: IDARUBICIN
     Indication: ACUTE MYELOID LEUKAEMIA
     Dosage: REMISSION INDUCTION THERAPY: 12 MG/M2, ONCE DAILY, FROM DAY 1 TO DAY 3
     Route: 041
     Dates: start: 20210514, end: 20210516
  17. CALONAL [Concomitant]
     Active Substance: ACETAMINOPHEN
     Indication: HEADACHE
     Route: 048
     Dates: start: 20210515
  18. SENNOSIDE [Concomitant]
     Active Substance: SENNOSIDES
     Indication: CONSTIPATION
     Route: 048
     Dates: start: 20210516
  19. ASP2215 [Suspect]
     Active Substance: GILTERITINIB
     Indication: ACUTE MYELOID LEUKAEMIA
     Route: 048
     Dates: start: 20210521, end: 20210603
  20. MAGMITT [Concomitant]
     Active Substance: MAGNESIUM OXIDE
     Indication: CONSTIPATION
     Route: 048
     Dates: start: 20210516
  21. POPIDON [Concomitant]
     Indication: PROPHYLAXIS
     Dosage: AS APPROPRIATE, ADEQUATE DOSE
     Route: 061
     Dates: start: 20210618

REACTIONS (1)
  - Myelosuppression [Not Recovered/Not Resolved]

NARRATIVE: CASE EVENT DATE: 20210709
